FAERS Safety Report 8143105-4 (Version None)
Quarter: 2012Q1

REPORT INFORMATION
  Report Type: 
  Country: None (occurrence: None)
  Receive Date: 20120217
  Receipt Date: 20120208
  Transmission Date: 20120608
  Serious: Yes (Congenital Anomaly, Other)
  Sender: FDA-Public Use
  Company Number: US-AMGEN-USASP2012008775

PATIENT

DRUGS (3)
  1. ENBREL [Suspect]
     Indication: PSORIASIS
     Dosage: 50 MG, 2 TIMES/WK
     Route: 064
     Dates: start: 20101021, end: 20110401
  2. BETA BLOCKING AGENTS [Concomitant]
     Dosage: UNK
  3. AZOR                               /00595201/ [Concomitant]
     Dosage: UNK

REACTIONS (3)
  - MICROTIA [None]
  - HYPOSPADIAS [None]
  - ATRIAL SEPTAL DEFECT [None]
